FAERS Safety Report 14881422 (Version 2)
Quarter: 2018Q3

REPORT INFORMATION
  Report Type: Spontaneous
  Country: US (occurrence: US)
  Receive Date: 20180511
  Receipt Date: 20180817
  Transmission Date: 20181010
  Serious: Yes (Other)
  Sender: FDA-Public Use
  Company Number: US-BAYER-2018-086510

PATIENT
  Age: 27 Year
  Sex: Female

DRUGS (1)
  1. MIRENA [Suspect]
     Active Substance: LEVONORGESTREL
     Dosage: 20 MCG/24HR, CONT
     Route: 015
     Dates: start: 201604

REACTIONS (4)
  - Uterine haemorrhage [None]
  - Uterine leiomyoma [None]
  - Device dislocation [None]
  - Endometrial thickening [None]

NARRATIVE: CASE EVENT DATE: 2016
